FAERS Safety Report 5370254-6 (Version None)
Quarter: 2007Q2

REPORT INFORMATION
  Report Type: 
  Country: None (occurrence: None)
  Receive Date: 20070625
  Receipt Date: 20070625
  Transmission Date: 20071010
  Serious: Yes (Death)
  Sender: FDA-Public Use
  Company Number: None

PATIENT
  Sex: Female
  Weight: 69.8539 kg

DRUGS (2)
  1. LEFLUNOMIDE [Suspect]
     Indication: RHEUMATOID ARTHRITIS
     Dosage: 10MG
     Dates: start: 20061024, end: 20061105
  2. HUMIRA [Concomitant]

REACTIONS (7)
  - CEREBROVASCULAR ACCIDENT [None]
  - COAGULOPATHY [None]
  - DRUG INEFFECTIVE [None]
  - HEPATIC FAILURE [None]
  - NAUSEA [None]
  - PULMONARY EMBOLISM [None]
  - VOMITING [None]
